FAERS Safety Report 8981440 (Version 2)
Quarter: 2013Q1

REPORT INFORMATION
  Report Type: Spontaneous
  Country: US (occurrence: US)
  Receive Date: 20121221
  Receipt Date: 20130111
  Transmission Date: 20140127
  Serious: Yes (Other)
  Sender: FDA-Public Use
  Company Number: US-JNJFOC-20121209200

PATIENT
  Sex: Male

DRUGS (1)
  1. LISTERINE ANTISEPTIC [Suspect]
     Indication: FEELING DRUNK
     Route: 048

REACTIONS (3)
  - Intentional drug misuse [Unknown]
  - Product lot number issue [Unknown]
  - Product expiration date issue [Unknown]
